FAERS Safety Report 7628536-0 (Version None)
Quarter: 2011Q3

REPORT INFORMATION
  Report Type: 
  Country: None (occurrence: None)
  Receive Date: 20110722
  Receipt Date: 20110714
  Transmission Date: 20111222
  Serious: Yes (Other)
  Sender: FDA-Public Use
  Company Number: BR-ASTELLAS-2011US004019

PATIENT
  Sex: Male
  Weight: 110 kg

DRUGS (7)
  1. PREDNISONE [Suspect]
     Dosage: 7.5 MG, UID/QD
     Route: 048
     Dates: start: 20100622
  2. TACROLIMUS [Suspect]
     Indication: RENAL TRANSPLANT
     Dosage: 9 MG, BID
     Route: 048
     Dates: start: 20090723
  3. PREDNISONE [Suspect]
     Dosage: 8.75 MG, UID/QD
     Route: 048
     Dates: start: 20100113, end: 20100621
  4. PREDNISONE [Suspect]
     Indication: RENAL TRANSPLANT
     Dosage: 15 MG, UID/QD
     Route: 048
     Dates: start: 20090820, end: 20091028
  5. MYCOPHENOLATE SODIUM [Suspect]
     Indication: RENAL TRANSPLANT
     Dosage: 2880 MG, UID/QD
     Route: 048
     Dates: start: 20090923
  6. PREDNISONE [Suspect]
     Dosage: 12.5 MG, UID/QD
     Route: 048
     Dates: start: 20091029, end: 20091215
  7. PREDNISONE [Suspect]
     Dosage: 10 MG, UID/QD
     Route: 048
     Dates: start: 20091216, end: 20100112

REACTIONS (2)
  - RENAL TUBULAR ATROPHY [None]
  - KIDNEY FIBROSIS [None]
